FAERS Safety Report 16725863 (Version 1)
Quarter: 2019Q3

REPORT INFORMATION
  Report Type: Spontaneous
  Country: US (occurrence: US)
  Receive Date: 20190821
  Receipt Date: 20190821
  Transmission Date: 20191005
  Serious: Yes (Other)
  Sender: FDA-Public Use
  Company Number: US-JNJFOC-20190816069

PATIENT
  Age: 62 Year
  Sex: Male
  Weight: 92.16 kg

DRUGS (6)
  1. XARELTO [Suspect]
     Active Substance: RIVAROXABAN
     Indication: DEEP VEIN THROMBOSIS
     Route: 048
     Dates: start: 2011
  2. ATORVASTATIN [Concomitant]
     Active Substance: ATORVASTATIN
  3. BENICAR [Concomitant]
     Active Substance: OLMESARTAN MEDOXOMIL
     Indication: HYPERTENSION
  4. ALLOPURINOL. [Concomitant]
     Active Substance: ALLOPURINOL
  5. LEVOTHYROXINE. [Concomitant]
     Active Substance: LEVOTHYROXINE
  6. TRAMADOL. [Concomitant]
     Active Substance: TRAMADOL

REACTIONS (3)
  - Joint range of motion decreased [Unknown]
  - Physical product label issue [Unknown]
  - Arthralgia [Unknown]

NARRATIVE: CASE EVENT DATE: 201803
